FAERS Safety Report 14193926 (Version 1)
Quarter: 2017Q4

REPORT INFORMATION
  Report Type: Spontaneous
  Country: JP (occurrence: JP)
  Receive Date: 20171116
  Receipt Date: 20171116
  Transmission Date: 20180321
  Serious: Yes (Other)
  Sender: FDA-Public Use
  Company Number: JP-B.I. PHARMACEUTICALS,INC./RIDGEFIELD-2017-NB-006570

PATIENT

DRUGS (8)
  1. MICAMLO COMBINATION [Suspect]
     Active Substance: AMLODIPINE BESYLATE\TELMISARTAN
     Indication: HYPERTENSION
     Route: 065
  2. MAINTATE [Suspect]
     Active Substance: BISOPROLOL FUMARATE
     Indication: PRODUCT USED FOR UNKNOWN INDICATION
     Route: 065
  3. ZYLORIC [Suspect]
     Active Substance: ALLOPURINOL
     Indication: PRODUCT USED FOR UNKNOWN INDICATION
     Route: 065
  4. SEIBULE [Suspect]
     Active Substance: MIGLITOL
     Indication: PRODUCT USED FOR UNKNOWN INDICATION
     Route: 065
  5. TAKEPRON [Suspect]
     Active Substance: LANSOPRAZOLE
     Indication: PRODUCT USED FOR UNKNOWN INDICATION
     Route: 065
  6. NESINA [Suspect]
     Active Substance: ALOGLIPTIN BENZOATE
     Indication: PRODUCT USED FOR UNKNOWN INDICATION
     Route: 065
  7. CEROCRAL [Suspect]
     Active Substance: IFENPRODIL
     Indication: PRODUCT USED FOR UNKNOWN INDICATION
     Route: 065
  8. CADUET [Suspect]
     Active Substance: AMLODIPINE BESYLATE\ATORVASTATIN CALCIUM
     Indication: PRODUCT USED FOR UNKNOWN INDICATION
     Route: 065

REACTIONS (29)
  - Chest pain [Unknown]
  - Hypoacusis [Unknown]
  - Angioedema [Unknown]
  - Gait disturbance [Unknown]
  - Ear discomfort [Unknown]
  - Ear pain [Unknown]
  - Nausea [Unknown]
  - Musculoskeletal pain [Unknown]
  - Dizziness [Unknown]
  - Feeling abnormal [Unknown]
  - Decreased appetite [Unknown]
  - Dizziness postural [Unknown]
  - Judgement impaired [Unknown]
  - Dysphonia [Unknown]
  - Movement disorder [Unknown]
  - Eye pain [Unknown]
  - Insomnia [Unknown]
  - Neuralgia [Unknown]
  - Musculoskeletal stiffness [Unknown]
  - Large intestine polyp [Unknown]
  - Muscle tightness [Unknown]
  - Respiration abnormal [Unknown]
  - Palpitations [Unknown]
  - Headache [Unknown]
  - Visual impairment [Unknown]
  - Mental impairment [Unknown]
  - Memory impairment [Unknown]
  - Pruritus generalised [Unknown]
  - Visual acuity reduced [Unknown]
